FAERS Safety Report 8994421 (Version 1)
Quarter: 2012Q4

REPORT INFORMATION
  Report Type: Spontaneous
  Country: US (occurrence: None)
  Receive Date: 20121228
  Receipt Date: 20121228
  Transmission Date: 20130627
  Serious: Yes (Hospitalization)
  Sender: FDA-Public Use
  Company Number: None

PATIENT
  Age: 49 Year
  Sex: Female
  Weight: 53.6 kg

DRUGS (1)
  1. ISONIAZID [Suspect]
     Indication: LATENT TUBERCULOSIS
     Dosage: isoniazid 300mg qday po
     Route: 048
     Dates: start: 20120705, end: 20120827

REACTIONS (8)
  - Pruritus [None]
  - Treatment noncompliance [None]
  - Fatigue [None]
  - Abdominal discomfort [None]
  - Diarrhoea [None]
  - Flatulence [None]
  - Jaundice [None]
  - Liver function test abnormal [None]
